FAERS Safety Report 8814178 (Version 1)
Quarter: 2012Q4

REPORT INFORMATION
  Report Type: Spontaneous
  Country: GB (occurrence: None)
  Receive Date: 20120925
  Receipt Date: 20120925
  Transmission Date: 20130627
  Serious: Yes (Hospitalization)
  Sender: FDA-Public Use
  Company Number: 2012P1059147

PATIENT
  Age: 88 Year
  Sex: Male

DRUGS (11)
  1. WARFARIN SODIUM [Suspect]
     Dates: end: 20120612
  2. COLCHICINE [Suspect]
     Indication: GOUT ACUTE
     Route: 048
     Dates: start: 20120611, end: 20120611
  3. COLCHICINE [Suspect]
     Indication: GOUT ACUTE
     Route: 048
     Dates: start: 20120611, end: 20120612
  4. BUMETANIDE [Concomitant]
  5. DIGOXIN [Concomitant]
  6. OMEPRAZOLE [Concomitant]
  7. PRIOXICAM [Concomitant]
  8. RAMIPRIL [Concomitant]
  9. SALMETEROL AND FLUTICASONE [Concomitant]
  10. SPIRONOLACTONE [Concomitant]
  11. VENTOLIN [Concomitant]

REACTIONS (2)
  - International normalised ratio increased [None]
  - Drug interaction [None]
